FAERS Safety Report 10744650 (Version 3)
Quarter: 2015Q1

REPORT INFORMATION
  Report Type: Report from Study
  Country: KR (occurrence: KR)
  Receive Date: 20150128
  Receipt Date: 20150203
  Transmission Date: 20150721
  Serious: Yes (Death, Other)
  Sender: FDA-Public Use
  Company Number: KR-ABBVIE-12P-090-0889540-00

PATIENT
  Age: 36 Year
  Sex: Male
  Weight: 54 kg

DRUGS (20)
  1. APIDRA SOLOSTAR [Concomitant]
     Active Substance: INSULIN GLULISINE
     Indication: DIABETES MELLITUS
     Dosage: DAILY DOSE: 10 IU
     Route: 058
     Dates: start: 20100125, end: 20100420
  2. CYMEVENE [Concomitant]
     Active Substance: GANCICLOVIR
     Indication: CYTOMEGALOVIRUS INFECTION
     Dosage: DAILY DOSE: 325MG
     Route: 042
     Dates: start: 20100228, end: 20100302
  3. DIABEX [Concomitant]
     Active Substance: METFORMIN HYDROCHLORIDE
     Indication: DIABETES MELLITUS
     Dosage: DAILY DOSE: 500MG
     Route: 048
     Dates: start: 20100306, end: 20100315
  4. FUNGIZONE [Suspect]
     Active Substance: AMPHOTERICIN B
     Indication: PRODUCT USED FOR UNKNOWN INDICATION
     Route: 065
     Dates: start: 20100413, end: 20100417
  5. LAMIVUDINE W/ZIDOVUDINE [Concomitant]
     Indication: ANTIRETROVIRAL THERAPY
     Dosage: DAILY DOSE: 2 TABS
     Dates: start: 20100309, end: 20100420
  6. DIFLUCAN [Concomitant]
     Active Substance: FLUCONAZOLE
     Indication: CANDIDA INFECTION
     Dosage: DAILY DOSE: 50MG
     Route: 048
     Dates: start: 20100126, end: 20100420
  7. GADIN [Concomitant]
     Indication: PROPHYLAXIS
  8. KALETRA [Suspect]
     Active Substance: LOPINAVIR\RITONAVIR
     Route: 048
     Dates: start: 20100410, end: 20100420
  9. LANSTON [Concomitant]
     Active Substance: LANSOPRAZOLE
     Indication: PROPHYLAXIS
  10. HUMULIN L [Concomitant]
     Active Substance: INSULIN HUMAN
     Indication: DIABETES MELLITUS
     Dosage: DAILY DOSE: 10 IU
     Route: 058
     Dates: start: 20100125, end: 20100420
  11. GASTER [Concomitant]
     Active Substance: FAMOTIDINE
     Indication: PROPHYLAXIS
  12. KALETRA [Suspect]
     Active Substance: LOPINAVIR\RITONAVIR
     Indication: HIV INFECTION
     Route: 065
     Dates: start: 20100131, end: 20100402
  13. GADIN [Concomitant]
     Indication: GASTROINTESTINAL DISORDER
     Dosage: DAILY DOSE: 50MG
     Dates: start: 20100126, end: 20100411
  14. LANSTON [Concomitant]
     Active Substance: LANSOPRAZOLE
     Indication: GASTROINTESTINAL DISORDER
     Dosage: DAILY DOSE: 15MG
     Route: 048
     Dates: start: 20100206, end: 20100322
  15. URSA [Concomitant]
     Indication: PROPHYLAXIS
     Dosage: DAILY DOSE: 3 TABS
     Route: 048
     Dates: start: 20100125, end: 20100420
  16. PETHIDINE HCL [Concomitant]
     Indication: PAIN
     Dosage: DAILY DOSE: 1 AMP
     Route: 042
     Dates: start: 20100216, end: 20100418
  17. AVELOX [Concomitant]
     Active Substance: MOXIFLOXACIN HYDROCHLORIDE
     Indication: UPPER RESPIRATORY TRACT INFECTION
     Dosage: DAILY DOSE: 400MG
     Route: 042
     Dates: start: 20100125, end: 20100402
  18. URSA [Concomitant]
     Indication: LIVER DISORDER
  19. SURFOLASE [Concomitant]
     Indication: UPPER RESPIRATORY TRACT INFECTION
     Dosage: DAILY DOSE: 200MG
     Route: 048
     Dates: start: 20100131, end: 20100217
  20. GASTER [Concomitant]
     Active Substance: FAMOTIDINE
     Indication: GASTROINTESTINAL DISORDER
     Dosage: DAILY DOSE: 40MG
     Route: 048
     Dates: start: 20100128, end: 20100326

REACTIONS (17)
  - Chest discomfort [Fatal]
  - Metabolic acidosis [Fatal]
  - Pain [Not Recovered/Not Resolved]
  - Blood pressure inadequately controlled [Unknown]
  - Splenomegaly [Unknown]
  - Blood pressure decreased [Fatal]
  - Urine output decreased [Unknown]
  - Cholestasis [Not Recovered/Not Resolved]
  - Blood bilirubin increased [Fatal]
  - Disseminated intravascular coagulation [Fatal]
  - Liver disorder [Unknown]
  - Acute kidney injury [Fatal]
  - Acute kidney injury [Unknown]
  - Gastrointestinal haemorrhage [Unknown]
  - Candida infection [Unknown]
  - Duodenitis [Unknown]
  - Depression [Not Recovered/Not Resolved]

NARRATIVE: CASE EVENT DATE: 20100214
